FAERS Safety Report 7382411-8 (Version None)
Quarter: 2011Q1

REPORT INFORMATION
  Report Type: 
  Country: None (occurrence: None)
  Receive Date: 20110329
  Receipt Date: 20110311
  Transmission Date: 20110831
  Serious: Yes (Hospitalization)
  Sender: FDA-Public Use
  Company Number: US-BAYER-201039806NA

PATIENT
  Sex: Female
  Weight: 60.771 kg

DRUGS (7)
  1. MELATONIN [Concomitant]
     Indication: SLEEP DISORDER THERAPY
  2. YAZ [Suspect]
     Indication: PREMENSTRUAL SYNDROME
     Dosage: UNK UNK, QD
     Route: 048
     Dates: start: 20080401, end: 20080908
  3. YAZ [Suspect]
  4. ADDERALL 10 [Concomitant]
     Indication: AFFECT LABILITY
     Dosage: UNK UNK, QD
  5. IBUPROFEN [Concomitant]
     Indication: PAIN
  6. PROZAC [Concomitant]
     Indication: AFFECT LABILITY
     Dosage: UNK UNK, QD
  7. FLONASE [Concomitant]
     Indication: MULTIPLE ALLERGIES

REACTIONS (5)
  - PYREXIA [None]
  - PULMONARY EMBOLISM [None]
  - BACK PAIN [None]
  - EMOTIONAL DISTRESS [None]
  - PNEUMONIA [None]
